FAERS Safety Report 8111087-7 (Version None)
Quarter: 2012Q1

REPORT INFORMATION
  Report Type: 
  Country: None (occurrence: None)
  Receive Date: 20120203
  Receipt Date: 20110403
  Transmission Date: 20120608
  Serious: No
  Sender: FDA-Public Use
  Company Number: US-GLAXOSMITHKLINE-A0921911A

PATIENT
  Sex: Male

DRUGS (1)
  1. LAMICTAL [Suspect]
     Indication: ANXIETY
     Dosage: 25MG SEE DOSAGE TEXT
     Route: 065
     Dates: start: 20110101

REACTIONS (3)
  - HEAT RASH [None]
  - RASH [None]
  - PHOTODERMATOSIS [None]
